FAERS Safety Report 9856827 (Version 1)
Quarter: 2014Q1

REPORT INFORMATION
  Report Type: Spontaneous
  Country: BR (occurrence: BR)
  Receive Date: 20140130
  Receipt Date: 20140130
  Transmission Date: 20141002
  Serious: Yes (Other)
  Sender: FDA-Public Use
  Company Number: BR-PFIZER INC-2014025762

PATIENT
  Sex: Female

DRUGS (13)
  1. LYRICA [Suspect]
     Dosage: 75 MG, UNK
  2. LYRICA [Suspect]
     Dosage: 150 MG, UNK
  3. PURAN T4 [Concomitant]
     Dosage: 112 MG, UNK
  4. ULTRACET [Concomitant]
     Dosage: 37.5/ 375
  5. NOVALGINA [Concomitant]
     Dosage: 1 MG, 1X/DAY OR 2X/DAY
  6. NAPRIX D [Concomitant]
     Dosage: 5/12.5
  7. OLCADIL [Concomitant]
     Dosage: 2 MG, DAILY
  8. FLUOXETINE [Concomitant]
     Dosage: 20 MG, UNK
     Dates: start: 201311
  9. VENLAFAXINE [Concomitant]
     Dosage: 150 MG, UNK
  10. GLIFAGE XR [Concomitant]
     Dosage: 1 TABLET OF STRENGHT 500 MG, DAILY
  11. CITALOR [Concomitant]
     Dosage: 20 MG, UNK
  12. XALATAN [Concomitant]
  13. POLARAMINE [Concomitant]
     Dosage: UNSPECIFIED DOSE, OCCASIONALLY

REACTIONS (15)
  - Mental impairment [Unknown]
  - Weight increased [Unknown]
  - Speech disorder [Unknown]
  - Disorientation [Unknown]
  - Sleep disorder [Unknown]
  - Lethargy [Unknown]
  - Vertigo [Unknown]
  - Dry mouth [Unknown]
  - Flatulence [Unknown]
  - Swelling [Unknown]
  - Increased appetite [Unknown]
  - Decreased appetite [Unknown]
  - Abdominal distension [Unknown]
  - Memory impairment [Unknown]
  - Drug ineffective [Unknown]
